FAERS Safety Report 8501291-8 (Version None)
Quarter: 2012Q3

REPORT INFORMATION
  Report Type: 
  Country: None (occurrence: None)
  Receive Date: 20120710
  Receipt Date: 20120707
  Transmission Date: 20120928
  Serious: No
  Sender: FDA-Public Use
  Company Number: US-PFIZER INC-2012162771

PATIENT
  Sex: Female

DRUGS (2)
  1. NEURONTIN [Suspect]
     Dosage: UNK
     Route: 048
  2. DILANTIN [Suspect]
     Dosage: UNK

REACTIONS (6)
  - FATIGUE [None]
  - DIZZINESS [None]
  - ASTHENIA [None]
  - DRUG HYPERSENSITIVITY [None]
  - URTICARIA [None]
  - RASH [None]
